FAERS Safety Report 6102556-X (Version None)
Quarter: 2009Q1

REPORT INFORMATION
  Report Type: 
  Country: None (occurrence: None)
  Receive Date: 20090304
  Receipt Date: 20080820
  Transmission Date: 20090719
  Serious: No
  Sender: FDA-Public Use
  Company Number: A0743531A

PATIENT
  Age: 76 Year
  Sex: Female

DRUGS (10)
  1. REQUIP [Suspect]
     Dosage: .25MG PER DAY
     Route: 048
     Dates: start: 20080201
  2. IBUPROFEN [Concomitant]
  3. ACTONEL [Concomitant]
  4. LEVOXYL [Concomitant]
  5. CRESTOR [Concomitant]
  6. MULTI-VITAMIN [Concomitant]
  7. CHROMIUM [Concomitant]
  8. ASPIRIN [Concomitant]
  9. CLARITIN [Concomitant]
  10. AMBIEN [Concomitant]

REACTIONS (2)
  - DIZZINESS [None]
  - EUPHORIC MOOD [None]
